FAERS Safety Report 6551767-8 (Version None)
Quarter: 2010Q1

REPORT INFORMATION
  Report Type: 
  Country: None (occurrence: None)
  Receive Date: 20100126
  Receipt Date: 20100115
  Transmission Date: 20100710
  Serious: Yes (Other)
  Sender: FDA-Public Use
  Company Number: US-ROCHE-680937

PATIENT
  Age: 56 Year
  Sex: Male

DRUGS (2)
  1. AVASTIN [Suspect]
     Indication: PROSTATE CANCER
     Dosage: FREQUENCY: ONCE OR TWICE. THERAPY DISCONTINUED
     Route: 042
     Dates: start: 20091001, end: 20091101
  2. THALIDOMIDE [Suspect]
     Indication: PROSTATE CANCER
     Dosage: FREQUENCY: DAILY
     Route: 048

REACTIONS (1)
  - IDIOPATHIC THROMBOCYTOPENIC PURPURA [None]
